FAERS Safety Report 9060986 (Version 1)
Quarter: 2013Q1

REPORT INFORMATION
  Report Type: Spontaneous
  Country: US (occurrence: US)
  Receive Date: 20130213
  Receipt Date: 20130213
  Transmission Date: 20140127
  Serious: Yes (Other)
  Sender: FDA-Public Use
  Company Number: US-AMGEN-USASP2013008213

PATIENT
  Age: 87 Year
  Sex: Female

DRUGS (4)
  1. SENSIPAR [Suspect]
     Indication: HYPERPARATHYROIDISM SECONDARY
     Dosage: 30 MG, BID
     Dates: start: 20130128
  2. GLUCOSEAMINE SULPHATE [Concomitant]
     Dosage: UNK
  3. CALCIUM [Concomitant]
     Dosage: 500 MG, QD
  4. VITAMIN D /00107901/ [Concomitant]

REACTIONS (5)
  - Vision blurred [Unknown]
  - Dysgeusia [Recovered/Resolved]
  - Constipation [Unknown]
  - Asthenia [Unknown]
  - Middle insomnia [Unknown]
